FAERS Safety Report 4647197-6 (Version None)
Quarter: 2005Q2

REPORT INFORMATION
  Report Type: 
  Country: None (occurrence: None)
  Receive Date: 20050426
  Receipt Date: 20050413
  Transmission Date: 20051028
  Serious: Yes (Other)
  Sender: FDA-Public Use
  Company Number: 2005059817

PATIENT
  Sex: Female
  Weight: 97.0698 kg

DRUGS (9)
  1. BEXTRA [Suspect]
     Indication: INFLAMMATION
     Dosage: 20 MG (10 MG, 2 IN 1 D), ORAL
     Route: 048
  2. QUETIAPINE FUMARATE [Suspect]
     Indication: SCHIZOAFFECTIVE DISORDER
     Dosage: 4 IN 1 D), ORAL
     Route: 048
     Dates: end: 20050101
  3. TOPIRAMATE [Concomitant]
  4. CLONAZEPAM [Concomitant]
  5. ESCITALOPRAM OXALATE [Concomitant]
  6. TIAGABINE HYDROCHLORIDE (TIAGABINE HYDROCHLORIDE) [Concomitant]
  7. BUPROPION HYDROCHLORIDE [Concomitant]
  8. TRAZODONE HCL [Concomitant]
  9. ARIPIPRAZOLE (ARIPIPRAZOLE) [Concomitant]

REACTIONS (6)
  - BLOOD CHOLESTEROL INCREASED [None]
  - BLOOD GLUCOSE INCREASED [None]
  - DRUG INEFFECTIVE [None]
  - PARANOIA [None]
  - SCHIZOAFFECTIVE DISORDER [None]
  - WEIGHT INCREASED [None]
